FAERS Safety Report 7456121-2 (Version None)
Quarter: 2011Q2

REPORT INFORMATION
  Report Type: 
  Country: None (occurrence: None)
  Receive Date: 20110503
  Receipt Date: 20110418
  Transmission Date: 20111010
  Serious: Yes (Other)
  Sender: FDA-Public Use
  Company Number: PHHY2011US28664

PATIENT
  Sex: Female

DRUGS (5)
  1. GILENYA [Suspect]
     Indication: MULTIPLE SCLEROSIS
     Dosage: 0.5 MG, QD
     Route: 048
     Dates: start: 20110201, end: 20110302
  2. ALLEGRA [Concomitant]
     Dosage: UNK UKN, QD
  3. MOTRIN [Concomitant]
     Dosage: UNK UKN, PRN
  4. COUGH SYRUP [Concomitant]
     Dosage: UNK UKN, PRN
  5. COD-LIVER OIL [Concomitant]
     Dosage: UNK UKN, UNK

REACTIONS (5)
  - ASTHENIA [None]
  - WHITE BLOOD CELL COUNT DECREASED [None]
  - GAIT DISTURBANCE [None]
  - BALANCE DISORDER [None]
  - URINARY TRACT INFECTION [None]
